FAERS Safety Report 6768694-3 (Version None)
Quarter: 2010Q2

REPORT INFORMATION
  Report Type: 
  Country: None (occurrence: None)
  Receive Date: 20100614
  Receipt Date: 20100604
  Transmission Date: 20101027
  Serious: Yes (Other)
  Sender: FDA-Public Use
  Company Number: US-JNJCH-2010013584

PATIENT
  Age: 75 Year
  Sex: Female

DRUGS (1)
  1. LUBRIDERM ADVANCED THERAPY MOISTURIZING LOTION SPF 30 [Suspect]
     Indication: PROPHYLAXIS
     Dosage: TEXT:TWO TIMES A DAY
     Route: 061

REACTIONS (2)
  - INFLAMMATION [None]
  - RASH [None]
